FAERS Safety Report 20351639 (Version 2)
Quarter: 2022Q1

REPORT INFORMATION
  Report Type: Spontaneous
  Country: US (occurrence: US)
  Receive Date: 20220119
  Receipt Date: 20220211
  Transmission Date: 20220423
  Serious: No
  Sender: FDA-Public Use
  Company Number: US-PFIZER INC-202200036566

PATIENT
  Age: 64 Year
  Sex: Female
  Weight: 65.32 kg

DRUGS (2)
  1. ESTRING [Suspect]
     Active Substance: ESTRADIOL
     Indication: Atrophic vulvovaginitis
     Dosage: UNK
     Dates: start: 202110
  2. ESTRING [Suspect]
     Active Substance: ESTRADIOL
     Indication: Bladder prolapse

REACTIONS (3)
  - Headache [Unknown]
  - Hypertension [Unknown]
  - Fungal infection [Unknown]
